FAERS Safety Report 7562036-1 (Version None)
Quarter: 2011Q2

REPORT INFORMATION
  Report Type: 
  Country: None (occurrence: None)
  Receive Date: 20110622
  Receipt Date: 20080717
  Transmission Date: 20111010
  Serious: Yes (Other)
  Sender: FDA-Public Use
  Company Number: PHHY2008DE37541

PATIENT
  Sex: Male
  Weight: 100 kg

DRUGS (2)
  1. SANDOSTATIN LAR [Suspect]
     Indication: ACROMEGALY
     Dosage: 30 MG, UNK
     Route: 030
     Dates: start: 20080717
  2. TESTOTERONE [Concomitant]

REACTIONS (3)
  - BURNING SENSATION [None]
  - CONSTIPATION [None]
  - DEPRESSION [None]
